FAERS Safety Report 11292796 (Version 1)
Quarter: 2015Q2

REPORT INFORMATION
  Report Type: Spontaneous
  Country: US (occurrence: None)
  Receive Date: 20150623
  Receipt Date: 20150623
  Transmission Date: 20150821
  Serious: Yes (Other)
  Sender: FDA-Public Use
  Company Number: RB-68483-2014

PATIENT
  Age: 44 Year
  Sex: Female

DRUGS (1)
  1. DEXTROMETHORPHAN\GUAIFENESIN [Suspect]
     Active Substance: DEXTROMETHORPHAN\GUAIFENESIN
     Indication: PRODUCT USED FOR UNKNOWN INDICATION
     Dosage: (1200 MG TOTAL, TOOK ONLY 1 TABLET (ON 28-AUG-2014) UNKNOWN)
     Dates: start: 20140828

REACTIONS (7)
  - Nausea [None]
  - Speech disorder [None]
  - Paralysis [None]
  - Heart rate increased [None]
  - Feeling hot [None]
  - Gait disturbance [None]
  - Loss of consciousness [None]
